FAERS Safety Report 4920259-1 (Version None)
Quarter: 2006Q1

REPORT INFORMATION
  Report Type: 
  Country: None (occurrence: None)
  Receive Date: 20060223
  Receipt Date: 20050103
  Transmission Date: 20060701
  Serious: Yes (Death)
  Sender: FDA-Public Use
  Company Number: US-GLAXOSMITHKLINE-A0539357A

PATIENT
  Age: 49 Year
  Sex: Male
  Weight: 88.6 kg

DRUGS (7)
  1. PAXIL [Suspect]
     Indication: ANXIETY
     Dosage: 20MG AT NIGHT
     Route: 048
     Dates: start: 19970101
  2. PRILOSEC [Concomitant]
     Dosage: 20MG IN THE MORNING
  3. NORVASC [Concomitant]
     Dosage: 20MG IN THE MORNING
  4. TYLENOL [Concomitant]
  5. REGLAN [Concomitant]
  6. AMBIEN [Concomitant]
  7. ZANTAC [Concomitant]

REACTIONS (5)
  - ABNORMAL BEHAVIOUR [None]
  - COMPLETED SUICIDE [None]
  - INSOMNIA [None]
  - MAJOR DEPRESSION [None]
  - SOCIAL AVOIDANT BEHAVIOUR [None]
